FAERS Safety Report 5856578-4 (Version None)
Quarter: 2008Q3

REPORT INFORMATION
  Report Type: 
  Country: None (occurrence: None)
  Receive Date: 20080825
  Receipt Date: 20080814
  Transmission Date: 20090109
  Serious: Yes (Hospitalization)
  Sender: FDA-Public Use
  Company Number: JP-MERCK-0808USA02702

PATIENT
  Age: 76 Year
  Sex: Female

DRUGS (5)
  1. FOSAMAX [Suspect]
     Indication: OSTEOPOROSIS
     Route: 048
     Dates: start: 20080501
  2. ONEALFA [Concomitant]
     Indication: OSTEOPOROSIS
     Route: 048
  3. GLAKAY [Concomitant]
     Indication: OSTEOPOROSIS
     Route: 048
  4. CALCIUM LACTATE [Concomitant]
     Indication: OSTEOPOROSIS
     Route: 048
  5. [THERAPY UNSPECIFIED] [Concomitant]
     Route: 065

REACTIONS (5)
  - FACE OEDEMA [None]
  - FATIGUE [None]
  - HYPOCALCAEMIA [None]
  - HYPOKALAEMIA [None]
  - HYPOTHYROIDISM [None]
